FAERS Safety Report 5199162-0 (Version None)
Quarter: 2007Q1

REPORT INFORMATION
  Report Type: 
  Country: None (occurrence: None)
  Receive Date: 20070104
  Receipt Date: 20061227
  Transmission Date: 20070707
  Serious: Yes (Hospitalization, Other)
  Sender: FDA-Public Use
  Company Number: US-PFIZER INC-2006123361

PATIENT
  Sex: Male
  Weight: 131.1 kg

DRUGS (1)
  1. BEXTRA [Suspect]
     Indication: ARTHRALGIA
     Dates: start: 20040811, end: 20040816

REACTIONS (4)
  - DEEP VEIN THROMBOSIS [None]
  - HYPERSENSITIVITY [None]
  - PHYSICAL DISABILITY [None]
  - PULMONARY EMBOLISM [None]
